FAERS Safety Report 7829721-5 (Version None)
Quarter: 2011Q4

REPORT INFORMATION
  Report Type: 
  Country: None (occurrence: None)
  Receive Date: 20111021
  Receipt Date: 20111006
  Transmission Date: 20120403
  Serious: Yes (Other)
  Sender: FDA-Public Use
  Company Number: DE-JNJFOC-20111007291

PATIENT
  Age: 75 Year
  Sex: Female

DRUGS (5)
  1. PALEXIA RETARD [Suspect]
     Indication: PRODUCT USED FOR UNKNOWN INDICATION
     Dosage: TWICE A DAY
     Route: 048
     Dates: start: 20110501
  2. MULTAQ [Suspect]
     Indication: PRODUCT USED FOR UNKNOWN INDICATION
     Dosage: TWICE A DAY
     Route: 065
     Dates: start: 20110101, end: 20110101
  3. PROPAFENONE HCL [Suspect]
     Indication: PRODUCT USED FOR UNKNOWN INDICATION
     Dosage: TWICE A DAY
     Route: 065
     Dates: start: 20110101, end: 20110101
  4. NEBIVOLOL HCL [Suspect]
     Indication: PRODUCT USED FOR UNKNOWN INDICATION
     Dosage: TWICE A DAY
     Route: 065
     Dates: start: 20110101, end: 20110101
  5. IRBESARTAN [Concomitant]
     Indication: HYPERTENSION
     Dosage: TWICE A DAY
     Route: 065

REACTIONS (3)
  - VOMITING [None]
  - NAUSEA [None]
  - ATRIAL FIBRILLATION [None]
